FAERS Safety Report 17953561 (Version 1)
Quarter: 2020Q2

REPORT INFORMATION
  Report Type: Spontaneous
  Country: US (occurrence: US)
  Receive Date: 20200628
  Receipt Date: 20200628
  Transmission Date: 20200714
  Serious: No
  Sender: FDA-Public Use
  Company Number: US-009507513-2006USA008035

PATIENT
  Sex: Female

DRUGS (1)
  1. KEYTRUDA [Suspect]
     Active Substance: PEMBROLIZUMAB
     Indication: MESOTHELIOMA

REACTIONS (3)
  - Keratoacanthoma [Recovering/Resolving]
  - Product use in unapproved indication [Unknown]
  - Lichenoid keratosis [Recovering/Resolving]
